FAERS Safety Report 13412284 (Version 2)
Quarter: 2017Q4

REPORT INFORMATION
  Report Type: Spontaneous
  Country: US (occurrence: US)
  Receive Date: 20170406
  Receipt Date: 20171121
  Transmission Date: 20180320
  Serious: No
  Sender: FDA-Public Use
  Company Number: US-JNJFOC-20170315245

PATIENT
  Age: 12 Year
  Sex: Male

DRUGS (4)
  1. INVEGA SUSTENNA [Suspect]
     Active Substance: PALIPERIDONE PALMITATE
     Indication: MOOD SWINGS
     Dosage: 156 MG AND 234 MG
     Route: 030
     Dates: start: 20130808, end: 20140515
  2. RISPERDAL [Suspect]
     Active Substance: RISPERIDONE
     Indication: MOOD SWINGS
     Dosage: 0.25 MG, 0.5MG, 1 MG
     Route: 048
     Dates: start: 20030806, end: 20110726
  3. INVEGA [Suspect]
     Active Substance: PALIPERIDONE
     Indication: MOOD SWINGS
     Route: 048
     Dates: start: 20120109, end: 20120117
  4. RISPERIDONE. [Suspect]
     Active Substance: RISPERIDONE
     Indication: MOOD SWINGS
     Dosage: 0.5 MG, 1 MG, 3 MG AND 4 MG
     Route: 048
     Dates: start: 20100304, end: 20130715

REACTIONS (4)
  - Gynaecomastia [Unknown]
  - Emotional disorder [Unknown]
  - Off label use [Unknown]
  - Product use in unapproved indication [Unknown]

NARRATIVE: CASE EVENT DATE: 20030806
